FAERS Safety Report 23955429 (Version 2)
Quarter: 2024Q2

REPORT INFORMATION
  Report Type: Spontaneous
  Country: JP (occurrence: JP)
  Receive Date: 20240610
  Receipt Date: 20240617
  Transmission Date: 20240716
  Serious: Yes (Death)
  Sender: FDA-Public Use
  Company Number: JP-JNJFOC-20240603226

PATIENT
  Age: 74 Year
  Sex: Female

DRUGS (2)
  1. OPSUMIT [Suspect]
     Active Substance: MACITENTAN
     Indication: Pulmonary hypertension
     Route: 048
  2. OXYGEN [Concomitant]
     Active Substance: OXYGEN
     Dosage: DOSE UNKNOWN
     Route: 055

REACTIONS (1)
  - Pulmonary hypertension [Fatal]
